FAERS Safety Report 5218225-4 (Version None)
Quarter: 2007Q1

REPORT INFORMATION
  Report Type: 
  Country: None (occurrence: None)
  Receive Date: 20061130
  Receipt Date: 20060505
  Transmission Date: 20070707
  Serious: Yes (Hospitalization, Other)
  Sender: FDA-Public Use
  Company Number: US200511002548

PATIENT
  Age: 58 Year
  Sex: Male
  Weight: 116.1 kg

DRUGS (17)
  1. ZYPREXA [Suspect]
     Indication: SCHIZOAFFECTIVE DISORDER
     Dosage: SEE IMAGE
     Dates: start: 19990101, end: 20010502
  2. ZYPREXA [Suspect]
     Indication: SCHIZOAFFECTIVE DISORDER
     Dosage: SEE IMAGE
     Dates: start: 20010503, end: 20010516
  3. ZYPREXA [Suspect]
     Indication: SCHIZOAFFECTIVE DISORDER
     Dosage: SEE IMAGE
     Dates: start: 20010517, end: 20010808
  4. ZYPREXA [Suspect]
     Indication: SCHIZOAFFECTIVE DISORDER
     Dosage: SEE IMAGE
     Dates: start: 20010809, end: 20011227
  5. ZYPREXA [Suspect]
     Indication: SCHIZOAFFECTIVE DISORDER
     Dosage: SEE IMAGE
     Dates: start: 20020328, end: 20020501
  6. ZYPREXA [Suspect]
     Indication: SCHIZOAFFECTIVE DISORDER
     Dosage: SEE IMAGE
     Dates: start: 20020502, end: 20020807
  7. ZYPREXA [Suspect]
     Indication: SCHIZOAFFECTIVE DISORDER
     Dosage: SEE IMAGE
     Dates: start: 20020808, end: 20021030
  8. ZYPREXA [Suspect]
     Indication: SCHIZOAFFECTIVE DISORDER
     Dosage: SEE IMAGE
     Dates: start: 20021031, end: 20021113
  9. ZYPREXA [Suspect]
     Indication: SCHIZOAFFECTIVE DISORDER
     Dosage: SEE IMAGE
     Dates: start: 20021114, end: 20021120
  10. ZYPREXA [Suspect]
     Indication: SCHIZOAFFECTIVE DISORDER
     Dosage: SEE IMAGE
     Dates: start: 20021121, end: 20021127
  11. DEPAKOTE [Concomitant]
  12. PAXIL [Concomitant]
  13. PROLIXIN [Concomitant]
  14. RISPERIDONE [Concomitant]
  15. VIOXX / USA / (ROFECOXIB) [Concomitant]
  16. PROTONIX [Concomitant]
  17. WELLBUTRIN [Concomitant]

REACTIONS (12)
  - DIABETES MELLITUS [None]
  - DIABETES MELLITUS NON-INSULIN-DEPENDENT [None]
  - DIABETIC COMA [None]
  - FATIGUE [None]
  - HYPERGLYCAEMIA [None]
  - HYPERLIPIDAEMIA [None]
  - INCREASED APPETITE [None]
  - METABOLIC DISORDER [None]
  - NEUROPATHY PERIPHERAL [None]
  - OEDEMA PERIPHERAL [None]
  - OVERWEIGHT [None]
  - WEIGHT INCREASED [None]
